FAERS Safety Report 4606391-0 (Version None)
Quarter: 2005Q2

REPORT INFORMATION
  Report Type: 
  Country: None (occurrence: None)
  Receive Date: 20050303
  Receipt Date: 20041202
  Transmission Date: 20051028
  Serious: No
  Sender: FDA-Public Use
  Company Number: 200420554BWH

PATIENT
  Age: 61 Year
  Sex: Male
  Weight: 95.2554 kg

DRUGS (6)
  1. LEVITRA [Suspect]
     Indication: ERECTILE DYSFUNCTION
     Dosage: 5 MG, OW, ORAL;  10 MG, ONCE, ORAL;  10 MG, ONCE, ORAL
     Route: 048
     Dates: start: 20040601, end: 20040801
  2. LEVITRA [Suspect]
     Indication: ERECTILE DYSFUNCTION
     Dosage: 5 MG, OW, ORAL;  10 MG, ONCE, ORAL;  10 MG, ONCE, ORAL
     Route: 048
     Dates: start: 20040601
  3. LEVITRA [Suspect]
     Indication: ERECTILE DYSFUNCTION
     Dosage: 5 MG, OW, ORAL;  10 MG, ONCE, ORAL;  10 MG, ONCE, ORAL
     Route: 048
     Dates: start: 20040915
  4. LISINOPRIL [Concomitant]
  5. ASPIRIN [Concomitant]
  6. MULTI-VITAMINS [Concomitant]

REACTIONS (4)
  - ERECTILE DYSFUNCTION [None]
  - FLUSHING [None]
  - HEADACHE [None]
  - RESTLESSNESS [None]
